FAERS Safety Report 11052951 (Version 1)
Quarter: 2015Q2

REPORT INFORMATION
  Report Type: Spontaneous
  Country: BE (occurrence: None)
  Receive Date: 20150420
  Receipt Date: 20150420
  Transmission Date: 20150821
  Serious: Yes (Hospitalization)
  Sender: FDA-Public Use
  Company Number: None

PATIENT
  Age: 61 Year
  Sex: Female
  Weight: 75.1 kg

DRUGS (8)
  1. FILGRASTIM [Concomitant]
     Active Substance: FILGRASTIM
  2. LEVOTHYROXINE [Concomitant]
     Active Substance: LEVOTHYROXINE
  3. DEXAMETHASONE. [Concomitant]
     Active Substance: DEXAMETHASONE
  4. GEMCITABINE HYDROCHLORIDE. [Suspect]
     Active Substance: GEMCITABINE HYDROCHLORIDE
     Dates: end: 20150327
  5. ATORVASTATIN [Concomitant]
     Active Substance: ATORVASTATIN
  6. METOCLOPRAMIDE. [Concomitant]
     Active Substance: METOCLOPRAMIDE
  7. IRBESARTAN. [Concomitant]
     Active Substance: IRBESARTAN
  8. TAXOTERE [Suspect]
     Active Substance: DOCETAXEL
     Dates: end: 20150327

REACTIONS (5)
  - Pyrexia [None]
  - Stomatitis [None]
  - Oropharyngeal pain [None]
  - Neutrophil count decreased [None]
  - Platelet count decreased [None]

NARRATIVE: CASE EVENT DATE: 20150403
